FAERS Safety Report 7209369-6 (Version None)
Quarter: 2011Q1

REPORT INFORMATION
  Report Type: 
  Country: None (occurrence: None)
  Receive Date: 20110104
  Receipt Date: 20101229
  Transmission Date: 20110831
  Serious: Yes (Hospitalization)
  Sender: FDA-Public Use
  Company Number: DE-TEVA-261604GER

PATIENT
  Sex: Female

DRUGS (9)
  1. TAVEGIL [Concomitant]
     Route: 042
     Dates: start: 20101116
  2. FLUOROURACIL [Suspect]
     Indication: COLORECTAL CANCER METASTATIC
     Route: 040
     Dates: start: 20101116
  3. ERBITUX [Suspect]
     Indication: COLORECTAL CANCER METASTATIC
     Route: 040
     Dates: start: 20101116
  4. ERBITUX [Suspect]
     Route: 042
     Dates: start: 20101116
  5. FLUOROURACIL [Suspect]
     Route: 042
     Dates: start: 20101116
  6. KEVATRIL 1 MG [Concomitant]
     Route: 042
     Dates: start: 20101116
  7. CAMPTO [Suspect]
     Indication: COLORECTAL CANCER METASTATIC
     Route: 042
     Dates: start: 20101116
  8. DEXAMETHASONE [Concomitant]
     Route: 042
     Dates: start: 20101116
  9. FOLINIC ACID [Suspect]
     Indication: COLORECTAL CANCER METASTATIC
     Route: 042
     Dates: start: 20101116

REACTIONS (1)
  - PULMONARY EMBOLISM [None]
